FAERS Safety Report 20988347 (Version 5)
Quarter: 2022Q3

REPORT INFORMATION
  Report Type: Report from Study
  Country: CA (occurrence: CA)
  Receive Date: 20220621
  Receipt Date: 20220930
  Transmission Date: 20221027
  Serious: Yes (Hospitalization, Other)
  Sender: FDA-Public Use
  Company Number: CA-HLS-202201136

PATIENT
  Age: 22 Year
  Sex: Male

DRUGS (1)
  1. CLOZARIL [Suspect]
     Active Substance: CLOZAPINE
     Indication: Product used for unknown indication
     Dosage: CURRENT DOSE WAS 212.5MG
     Route: 048
     Dates: start: 20220517, end: 20220603

REACTIONS (6)
  - Brugada syndrome [Unknown]
  - C-reactive protein increased [Not Recovered/Not Resolved]
  - Influenza like illness [Unknown]
  - Bundle branch block right [Unknown]
  - Pyrexia [Unknown]
  - Tachycardia [Not Recovered/Not Resolved]

NARRATIVE: CASE EVENT DATE: 20220601
